FAERS Safety Report 12353257 (Version 3)
Quarter: 2017Q1

REPORT INFORMATION
  Report Type: Report from Study
  Country: PA (occurrence: PA)
  Receive Date: 20160510
  Receipt Date: 20170131
  Transmission Date: 20170428
  Serious: Yes (Hospitalization, Other)
  Sender: FDA-Public Use
  Company Number: PHHY2016PA062758

PATIENT
  Sex: Female
  Weight: 116 kg

DRUGS (1)
  1. EXJADE [Suspect]
     Active Substance: DEFERASIROX
     Indication: IRON OVERLOAD
     Dosage: UNK
     Route: 048
     Dates: end: 201605

REACTIONS (8)
  - Abdominal distension [Recovered/Resolved]
  - Liver disorder [Recovered/Resolved]
  - Hyperglycaemia [Unknown]
  - Haematoma [Unknown]
  - Protein total decreased [Recovered/Resolved]
  - Pancreatic disorder [Unknown]
  - Haemoglobin decreased [Unknown]
  - Haemochromatosis [Unknown]
